FAERS Safety Report 8169456-5 (Version None)
Quarter: 2012Q1

REPORT INFORMATION
  Report Type: 
  Country: None (occurrence: None)
  Receive Date: 20120222
  Receipt Date: 20120215
  Transmission Date: 20120608
  Serious: Yes (Life-Threatening, Hospitalization, Other)
  Sender: FDA-Public Use
  Company Number: ADR-2012-00089

PATIENT
  Age: 36 Year
  Sex: Female
  Weight: 58 kg

DRUGS (1)
  1. BACLOFEN [Suspect]
     Indication: MUSCLE SPASTICITY
     Dosage: 110 MCG/DAY

REACTIONS (5)
  - ERYTHEMA [None]
  - IMPLANT SITE NECROSIS [None]
  - DEVICE BREAKAGE [None]
  - POST PROCEDURAL DISCHARGE [None]
  - INDURATION [None]
